FAERS Safety Report 12071730 (Version 1)
Quarter: 2016Q1

REPORT INFORMATION
  Report Type: Spontaneous
  Country: US (occurrence: US)
  Receive Date: 20160212
  Receipt Date: 20160212
  Transmission Date: 20160526
  Serious: Yes (Hospitalization)
  Sender: FDA-Public Use
  Company Number: US-NOVEN PHARMACEUTICALS, INC.-US2016000203

PATIENT

DRUGS (1)
  1. DAYTRANA [Suspect]
     Active Substance: METHYLPHENIDATE
     Indication: ATTENTION DEFICIT/HYPERACTIVITY DISORDER
     Dosage: 20 MG, UNKNOWN
     Route: 062
     Dates: start: 2011, end: 201508

REACTIONS (4)
  - Drug dose omission [Not Recovered/Not Resolved]
  - Suicide attempt [Recovered/Resolved]
  - Educational problem [Not Recovered/Not Resolved]
  - Physical assault [Recovered/Resolved]

NARRATIVE: CASE EVENT DATE: 201508
